FAERS Safety Report 23537934 (Version 2)
Quarter: 2025Q2

REPORT INFORMATION
  Report Type: Spontaneous
  Country: BR (occurrence: BR)
  Receive Date: 20240219
  Receipt Date: 20250409
  Transmission Date: 20250716
  Serious: Yes (Hospitalization)
  Sender: CELLTRION
  Company Number: BR-CELLTRION INC.-2024BR003431

PATIENT

DRUGS (2)
  1. INFLIXIMAB [Suspect]
     Active Substance: INFLIXIMAB
     Indication: Crohn^s disease
     Route: 042
     Dates: start: 20230627
  2. AZATHIOPRINE [Concomitant]
     Active Substance: AZATHIOPRINE
     Indication: Crohn^s disease
     Route: 048

REACTIONS (4)
  - Road traffic accident [Recovered/Resolved with Sequelae]
  - Limb injury [Recovered/Resolved with Sequelae]
  - Pain in extremity [Recovering/Resolving]
  - Intentional dose omission [Recovering/Resolving]

NARRATIVE: CASE EVENT DATE: 20230901
